FAERS Safety Report 5056939-X (Version None)
Quarter: 2006Q2

REPORT INFORMATION
  Report Type: 
  Country: None (occurrence: None)
  Receive Date: 20060621
  Receipt Date: 20050829
  Transmission Date: 20061013
  Serious: Yes (Other)
  Sender: FDA-Public Use
  Company Number: 23100236

PATIENT
  Age: 83 Year
  Sex: Male

DRUGS (15)
  1. NOVASTAN [Suspect]
     Indication: CEREBELLAR INFARCTION
  2. BUFFERIN [Suspect]
     Indication: MYOCARDIAL INFARCTION
  3. SOLDEM 3A [Concomitant]
  4. GLYCEOL [Concomitant]
  5. RADICUT [Concomitant]
  6. NIAZATIDINE [Concomitant]
  7. EXCELASE [Concomitant]
  8. FLEMPHYLINE [Concomitant]
  9. MAGNESIUM OXIDE [Concomitant]
  10. ISOSORBIDE DINITRATE [Concomitant]
  11. ADONA [Concomitant]
  12. TRANSAMIN [Concomitant]
  13. ZANTAC [Concomitant]
  14. ELASPOL [Concomitant]
  15. VANCOMYCIN [Concomitant]

REACTIONS (4)
  - ACUTE RESPIRATORY DISTRESS SYNDROME [None]
  - CEREBRAL INFARCTION [None]
  - GASTROINTESTINAL HAEMORRHAGE [None]
  - PNEUMONIA [None]
